FAERS Safety Report 21371386 (Version 1)
Quarter: 2022Q3

REPORT INFORMATION
  Report Type: Spontaneous
  Country: DE (occurrence: DE)
  Receive Date: 20220923
  Receipt Date: 20220923
  Transmission Date: 20221027
  Serious: Yes (Hospitalization)
  Sender: FDA-Public Use
  Company Number: DE-ADRED-07517-01

PATIENT
  Age: 44 Year
  Sex: Male

DRUGS (5)
  1. RISPERIDONE [Suspect]
     Active Substance: RISPERIDONE
     Indication: Product used for unknown indication
     Dosage: 3 MG, 1-0-1-0
     Route: 048
  2. CLOZAPINE [Suspect]
     Active Substance: CLOZAPINE
     Indication: Product used for unknown indication
     Dosage: 100 MG, 0-0-2-0
     Route: 048
  3. Gastrozepin 50 MG [Concomitant]
     Dosage: 50 MG, 1-0-0-0
     Route: 060
  4. LORAZEPAM [Concomitant]
     Active Substance: LORAZEPAM
     Route: 048
  5. PREGABALIN [Concomitant]
     Active Substance: PREGABALIN
     Route: 048

REACTIONS (4)
  - Tachypnoea [Unknown]
  - Oxygen saturation decreased [Unknown]
  - Dyspnoea [Unknown]
  - Coronavirus infection [Unknown]
